FAERS Safety Report 24569792 (Version 1)
Quarter: 2024Q4

REPORT INFORMATION
  Report Type: Spontaneous
  Country: US (occurrence: US)
  Receive Date: 20241031
  Receipt Date: 20241031
  Transmission Date: 20250114
  Serious: No
  Sender: ABBVIE
  Company Number: US-ABBVIE-5984175

PATIENT
  Age: 84 Year
  Sex: Female
  Weight: 68 kg

DRUGS (3)
  1. RESTASIS [Suspect]
     Active Substance: CYCLOSPORINE
     Indication: Dry eye
     Dosage: OPHTHALMIC EMULSION 0.05%
     Route: 047
     Dates: start: 20241021
  2. RESTASIS [Suspect]
     Active Substance: CYCLOSPORINE
     Indication: Lacrimation increased
  3. METOPROLOL [Concomitant]
     Active Substance: METOPROLOL
     Indication: Hypertension

REACTIONS (1)
  - Eye irritation [Not Recovered/Not Resolved]

NARRATIVE: CASE EVENT DATE: 20241021
